FAERS Safety Report 9702769 (Version 3)
Quarter: 2013Q4

REPORT INFORMATION
  Report Type: Spontaneous
  Country: US (occurrence: US)
  Receive Date: 20131121
  Receipt Date: 20131219
  Transmission Date: 20140711
  Serious: Yes (Other)
  Sender: FDA-Public Use
  Company Number: US-VIIV HEALTHCARE LIMITED-A1049671A

PATIENT
  Age: 39 Year
  Sex: Male

DRUGS (3)
  1. TRIZIVIR [Suspect]
     Indication: HIV INFECTION
     Dosage: 2CAP TWICE PER DAY
     Route: 048
     Dates: start: 200211, end: 20131105
  2. VIREAD [Suspect]
     Indication: HIV INFECTION
     Dosage: 600MG TWICE PER DAY
     Route: 048
     Dates: start: 2003, end: 20131105
  3. LISINOPRIL [Concomitant]

REACTIONS (7)
  - Coeliac disease [Recovered/Resolved]
  - Diarrhoea [Unknown]
  - Defaecation urgency [Recovered/Resolved]
  - Functional gastrointestinal disorder [Recovered/Resolved]
  - Abnormal faeces [Recovered/Resolved]
  - Headache [Recovered/Resolved]
  - Product quality issue [Unknown]
